FAERS Safety Report 8184346-X (Version None)
Quarter: 2012Q1

REPORT INFORMATION
  Report Type: 
  Country: None (occurrence: None)
  Receive Date: 20120305
  Receipt Date: 20120221
  Transmission Date: 20120608
  Serious: Yes (Other)
  Sender: FDA-Public Use
  Company Number: NL-ELI_LILLY_AND_COMPANY-NL201202007133

PATIENT
  Sex: Male
  Weight: 68 kg

DRUGS (3)
  1. OLANZAPINE [Suspect]
     Indication: PSYCHOTIC DISORDER
     Dosage: 210 MG, UNK
     Route: 030
     Dates: start: 20120125
  2. OXAZEPAM [Concomitant]
     Dosage: 50 MG, UNK
     Route: 048
     Dates: start: 20120125
  3. VALPROIC ACID [Concomitant]
     Dosage: 500 MG, UNK
     Route: 048
     Dates: start: 20120125

REACTIONS (5)
  - DYSARTHRIA [None]
  - SEDATION [None]
  - ATAXIA [None]
  - HYPOTONIA [None]
  - TREMOR [None]
